FAERS Safety Report 17811080 (Version 1)
Quarter: 2020Q2

REPORT INFORMATION
  Report Type: Spontaneous
  Country: US (occurrence: US)
  Receive Date: 20200520
  Receipt Date: 20200520
  Transmission Date: 20200714
  Serious: Yes (Death)
  Sender: FDA-Public Use
  Company Number: None

PATIENT
  Age: 70 Year
  Sex: Female
  Weight: 59.3 kg

DRUGS (15)
  1. BUMETANIDE 1MG Q12H [Concomitant]
     Dates: start: 20200518, end: 20200519
  2. OXYCODONE 5MG Q6H [Concomitant]
     Dates: start: 20200514, end: 20200520
  3. CALCIUM 500MG WITH VIT D 5MCG 2 DAILY [Concomitant]
     Dates: start: 20200515, end: 20200519
  4. PANTOPRAZOLE 40MG Q12H [Concomitant]
     Dates: start: 20200519, end: 20200519
  5. PROPOFOL INFUSION 25MCG/KG/MIN [Concomitant]
     Dates: start: 20200514, end: 20200520
  6. NOREPINEPHRINE 4MG/250ML INFUSION [Concomitant]
     Dates: start: 20200517, end: 20200520
  7. RIBAVIRIN 600MG Q8H [Concomitant]
     Dates: start: 20200511, end: 20200519
  8. PSYLLIUM 58.6% PACKET [Concomitant]
     Dates: start: 20200511, end: 20200519
  9. CEFTRIAXONE 2G IV DAILY [Concomitant]
     Dates: start: 20200510, end: 20200519
  10. FUROSEMIDE 20MG ONCE [Concomitant]
     Dates: start: 20200519, end: 20200519
  11. SERTRALINE 150MG DAILY [Concomitant]
     Dates: start: 20200510, end: 20200519
  12. VITAMIN D 2000 UNITS DAILY [Concomitant]
     Dates: start: 20200511, end: 20200519
  13. REMDESIVIR. [Suspect]
     Active Substance: REMDESIVIR
     Indication: COVID-19
     Route: 040
     Dates: start: 20200513, end: 20200517
  14. ALBUMIN 5% 25G [Concomitant]
     Dates: start: 20200520, end: 20200520
  15. ENOXAPARIN 80MG BID [Concomitant]
     Dates: start: 20200519, end: 20200519

REACTIONS (1)
  - Ventricular fibrillation [None]

NARRATIVE: CASE EVENT DATE: 20200520
